FAERS Safety Report 8410973-8 (Version None)
Quarter: 2012Q2

REPORT INFORMATION
  Report Type: 
  Country: None (occurrence: None)
  Receive Date: 20120605
  Receipt Date: 20120530
  Transmission Date: 20120825
  Serious: Yes (Other)
  Sender: FDA-Public Use
  Company Number: US-BAYER-2012-017713

PATIENT
  Age: 50 Year
  Sex: Female
  Weight: 81.179 kg

DRUGS (3)
  1. EFFEXOR [Concomitant]
  2. YAZ [Suspect]
     Route: 048
  3. TOPROL-XL [Concomitant]

REACTIONS (3)
  - DEEP VEIN THROMBOSIS [None]
  - PAIN IN EXTREMITY [None]
  - OEDEMA PERIPHERAL [None]
